FAERS Safety Report 9633242 (Version 1)
Quarter: 2013Q4

REPORT INFORMATION
  Report Type: Spontaneous
  Country: US (occurrence: None)
  Receive Date: 20131018
  Receipt Date: 20131018
  Transmission Date: 20140711
  Serious: Yes (Life-Threatening, Hospitalization)
  Sender: FDA-Public Use
  Company Number: None

PATIENT
  Age: 71 Year
  Sex: Male
  Weight: 117.94 kg

DRUGS (1)
  1. CRESTOR [Suspect]
     Indication: BLOOD CHOLESTEROL INCREASED
     Dosage: 1 PILL; ONCE DAILY; TAKEN BY MOUTH
     Route: 048
     Dates: start: 20101217, end: 20131011

REACTIONS (3)
  - Blood potassium increased [None]
  - Renal failure [None]
  - Rhabdomyolysis [None]
